FAERS Safety Report 21423975 (Version 1)
Quarter: 2022Q4

REPORT INFORMATION
  Report Type: Spontaneous
  Country: US (occurrence: None)
  Receive Date: 20221006
  Receipt Date: 20221006
  Transmission Date: 20230112
  Serious: Yes (Hospitalization)
  Sender: FDA-Public Use
  Company Number: None

PATIENT
  Age: 63 Year
  Sex: Male
  Weight: 92.08 kg

DRUGS (9)
  1. INLYTA [Suspect]
     Active Substance: AXITINIB
     Indication: Renal cancer
     Dosage: FREQUENCY : DAILY;?
     Route: 048
     Dates: start: 20220119
  2. ALKA-SELTZER [Concomitant]
  3. ASPIRIN [Concomitant]
     Active Substance: ASPIRIN
  4. ATORVASTATIN [Concomitant]
  5. BRILINTA [Concomitant]
  6. COLACE [Concomitant]
  7. HYDROCODONE-ACETAMINOPHEN [Concomitant]
  8. METOPROLOL [Concomitant]
  9. NITROGLYCERIN [Concomitant]

REACTIONS (1)
  - Coronary arterial stent insertion [None]
